FAERS Safety Report 9526788 (Version 1)
Quarter: 2013Q3

REPORT INFORMATION
  Report Type: Report from Study
  Country: AU (occurrence: AU)
  Receive Date: 20130916
  Receipt Date: 20130916
  Transmission Date: 20140515
  Serious: Yes (Other)
  Sender: FDA-Public Use
  Company Number: AU-GLAXOSMITHKLINE-B0841477A

PATIENT
  Age: 71 Year
  Sex: Male
  Weight: 94.4 kg

DRUGS (9)
  1. PAZOPANIB [Suspect]
     Indication: METASTATIC RENAL CELL CARCINOMA
     Dates: start: 20120920
  2. CELEBREX [Concomitant]
     Indication: OSTEOARTHRITIS
     Dosage: 100MG AS REQUIRED
     Route: 048
     Dates: start: 2007
  3. NUROFEN [Concomitant]
     Indication: OSTEOARTHRITIS
     Dosage: 200MG AS REQUIRED
     Route: 048
     Dates: start: 20070910
  4. PANADOL OSTEO [Concomitant]
     Indication: OSTEOARTHRITIS
     Dosage: 665MG AS REQUIRED
     Route: 048
     Dates: start: 2009
  5. CLINDAMYCIN [Concomitant]
     Indication: TOOTH EXTRACTION
     Dosage: 600MG AS REQUIRED
     Route: 048
     Dates: start: 20121022, end: 20121022
  6. ZINNAT [Concomitant]
     Indication: SINUSITIS
     Dosage: 250MG TWICE PER DAY
     Route: 048
     Dates: start: 20121026, end: 20121101
  7. ZYRTEC [Concomitant]
     Indication: SINUSITIS
     Dosage: 10MG AS REQUIRED
     Route: 048
     Dates: start: 20121009
  8. GAVISCON [Concomitant]
     Indication: DYSPEPSIA
     Dosage: 20MG AS REQUIRED
     Route: 048
     Dates: start: 20121024
  9. CEFUROXIME [Concomitant]
     Dosage: 250MG TWICE PER DAY
     Route: 048
     Dates: start: 20121026, end: 20121102

REACTIONS (1)
  - Alanine aminotransferase increased [Recovered/Resolved]
